FAERS Safety Report 7818338-4 (Version None)
Quarter: 2011Q4

REPORT INFORMATION
  Report Type: 
  Country: None (occurrence: None)
  Receive Date: 20111017
  Receipt Date: 20111013
  Transmission Date: 20120403
  Serious: Yes (Other)
  Sender: FDA-Public Use
  Company Number: US-ROCHE-610568

PATIENT
  Sex: Male
  Weight: 86.2 kg

DRUGS (3)
  1. ACCUTANE [Suspect]
     Indication: ACNE
     Route: 065
     Dates: start: 19921010, end: 19930104
  2. ACCUTANE [Suspect]
     Route: 065
     Dates: start: 19930123, end: 19930215
  3. HUMIRA [Concomitant]
     Indication: CROHN'S DISEASE

REACTIONS (5)
  - DEPRESSION [None]
  - CROHN'S DISEASE [None]
  - ANXIETY [None]
  - OPTIC NEURITIS [None]
  - INFLAMMATORY BOWEL DISEASE [None]
